FAERS Safety Report 14181100 (Version 1)
Quarter: 2017Q4

REPORT INFORMATION
  Report Type: Report from Study
  Country: US (occurrence: US)
  Receive Date: 20171112
  Receipt Date: 20171112
  Transmission Date: 20180321
  Serious: Yes (Death, Hospitalization, Other)
  Sender: FDA-Public Use
  Company Number: US-TORRENT-00003639

PATIENT
  Age: 67 Year
  Sex: Male

DRUGS (1)
  1. AMLODIPINE BESYLATE. [Suspect]
     Active Substance: AMLODIPINE BESYLATE
     Indication: PRODUCT USED FOR UNKNOWN INDICATION
     Route: 048

REACTIONS (8)
  - Anuria [Unknown]
  - Completed suicide [Fatal]
  - Unresponsive to stimuli [Unknown]
  - Acidosis [Fatal]
  - Intestinal ischaemia [Fatal]
  - Hypotension [Fatal]
  - Electrocardiogram QT prolonged [Unknown]
  - Toxicity to various agents [Fatal]
